FAERS Safety Report 7802648-0 (Version None)
Quarter: 2011Q4

REPORT INFORMATION
  Report Type: 
  Country: None (occurrence: None)
  Receive Date: 20111007
  Receipt Date: 20110927
  Transmission Date: 20120403
  Serious: Yes (Other)
  Sender: FDA-Public Use
  Company Number: PHEH2011US05240

PATIENT
  Sex: Male

DRUGS (2)
  1. FLEXERIL [Suspect]
     Dosage: UNK UKN, UNK
  2. MYFORTIC [Suspect]
     Dosage: UNK UKN, UNK

REACTIONS (2)
  - JOINT INJURY [None]
  - JOINT DISLOCATION [None]
